FAERS Safety Report 22098205 (Version 1)
Quarter: 2023Q1

REPORT INFORMATION
  Report Type: Spontaneous
  Country: US (occurrence: US)
  Receive Date: 20230315
  Receipt Date: 20230315
  Transmission Date: 20230417
  Serious: Yes (Other)
  Sender: FDA-Public Use
  Company Number: US-UCBSA-2023012739

PATIENT
  Age: 86 Year
  Sex: Female

DRUGS (1)
  1. CIMZIA [Suspect]
     Active Substance: CERTOLIZUMAB PEGOL
     Indication: Rheumatoid arthritis
     Dosage: 400 MILLIGRAM, EV 30 DAYS
     Route: 058

REACTIONS (3)
  - Dementia [Unknown]
  - Loss of personal independence in daily activities [Unknown]
  - Aphasia [Unknown]

NARRATIVE: CASE EVENT DATE: 20230228
